FAERS Safety Report 17012980 (Version 5)
Quarter: 2020Q1

REPORT INFORMATION
  Report Type: Spontaneous
  Country: JP (occurrence: JP)
  Receive Date: 20191109
  Receipt Date: 20200129
  Transmission Date: 20200409
  Serious: Yes (Life-Threatening, Hospitalization)
  Sender: FDA-Public Use
  Company Number: JP-B.I. PHARMACEUTICALS,INC./RIDGEFIELD-2019-NB-112808

PATIENT
  Age: 79 Year
  Sex: Male

DRUGS (1)
  1. PRAZAXA [Suspect]
     Active Substance: DABIGATRAN ETEXILATE MESYLATE
     Indication: ATRIAL FIBRILLATION
     Route: 048

REACTIONS (4)
  - Atelectasis [Recovered/Resolved]
  - Thermal burn [Not Recovered/Not Resolved]
  - Hypoxia [Recovered/Resolved]
  - Respiratory tract haemorrhage [Recovering/Resolving]

NARRATIVE: CASE EVENT DATE: 20191103
